FAERS Safety Report 18932716 (Version 2)
Quarter: 2021Q1

REPORT INFORMATION
  Report Type: Spontaneous
  Country: US (occurrence: US)
  Receive Date: 20210224
  Receipt Date: 20210227
  Transmission Date: 20210420
  Serious: No
  Sender: FDA-Public Use
  Company Number: US-ELI_LILLY_AND_COMPANY-US202102011697

PATIENT
  Sex: Female

DRUGS (1)
  1. FORTEO [Suspect]
     Active Substance: TERIPARATIDE
     Indication: OSTEOPOROSIS
     Dosage: UNK UNK, DAILY (FOR 4 DAYS SHE WOULD TAKE HER FORTEO IN THE MORNING AND THEN IN THE EVENING)
     Route: 065

REACTIONS (4)
  - Dizziness [Unknown]
  - Feeling jittery [Unknown]
  - Hypotension [Unknown]
  - Product dose omission issue [Unknown]
